FAERS Safety Report 14800399 (Version 2)
Quarter: 2018Q3

REPORT INFORMATION
  Report Type: Spontaneous
  Country: DE (occurrence: DE)
  Receive Date: 20180424
  Receipt Date: 20180706
  Transmission Date: 20181010
  Serious: Yes (Hospitalization)
  Sender: FDA-Public Use
  Company Number: DE-BAUSCH-BL-2018-011237

PATIENT
  Age: 61 Year
  Sex: Female

DRUGS (6)
  1. VENLAFAXINE [Concomitant]
     Active Substance: VENLAFAXINE HYDROCHLORIDE
     Indication: PRODUCT USED FOR UNKNOWN INDICATION
     Dosage: 150 MG, 1?0?0?0
     Route: 065
  2. PANTOPRAZOL [Concomitant]
     Active Substance: PANTOPRAZOLE SODIUM
     Indication: PRODUCT USED FOR UNKNOWN INDICATION
     Dosage: 40 MG, 1?0?0?0
     Route: 065
  3. HYDROCHLOROTHIAZID [Concomitant]
     Active Substance: HYDROCHLOROTHIAZIDE
     Indication: PRODUCT USED FOR UNKNOWN INDICATION
     Dosage: 12.5 MG, 1?0?0?0
     Route: 065
  4. DICLOFENAC [Suspect]
     Active Substance: DICLOFENAC
     Indication: PRODUCT USED FOR UNKNOWN INDICATION
     Route: 065
  5. EUTHYROX [Concomitant]
     Active Substance: LEVOTHYROXINE SODIUM
     Indication: PRODUCT USED FOR UNKNOWN INDICATION
     Dosage: 125 MICROGRAM, 1?0?0?0
     Route: 065
  6. ENALAPRIL [Concomitant]
     Active Substance: ENALAPRIL
     Indication: PRODUCT USED FOR UNKNOWN INDICATION
     Dosage: 5 MG, 1?0?0?0
     Route: 065

REACTIONS (15)
  - Acute respiratory failure [Unknown]
  - Pruritus [Unknown]
  - Medication monitoring error [Recovered/Resolved]
  - Contraindicated product administered [Recovered/Resolved]
  - Bradycardia [Unknown]
  - Swollen tongue [Unknown]
  - Anal incontinence [Unknown]
  - Paraesthesia oral [Unknown]
  - Wrong drug administered [Recovered/Resolved]
  - Rash [Unknown]
  - Orthostatic intolerance [Unknown]
  - Nausea [Unknown]
  - Dyspnoea [Unknown]
  - Urticaria [Unknown]
  - Medication error [Recovered/Resolved]
